FAERS Safety Report 17188403 (Version 2)
Quarter: 2020Q1

REPORT INFORMATION
  Report Type: Report from Study
  Country: US (occurrence: US)
  Receive Date: 20191222
  Receipt Date: 20200317
  Transmission Date: 20200409
  Serious: Yes (Death, Other)
  Sender: FDA-Public Use
  Company Number: NVSC2019US073458

PATIENT
  Age: 9 Year
  Sex: Male

DRUGS (3)
  1. KYMRIAH [Suspect]
     Active Substance: TISAGENLECLEUCEL
     Indication: B-CELL TYPE ACUTE LEUKAEMIA
     Dosage: UNK, ONCE/SINGLE
     Route: 041
     Dates: start: 2018
  2. FLUDARABINE [Concomitant]
     Active Substance: FLUDARABINE PHOSPHATE
     Indication: CHEMOTHERAPY
     Route: 065
  3. CYCLOPHOSPHAMIDE. [Concomitant]
     Active Substance: CYCLOPHOSPHAMIDE
     Indication: CHEMOTHERAPY
     Route: 065

REACTIONS (14)
  - Sinusitis [Unknown]
  - Haemoglobin decreased [Unknown]
  - B-cell type acute leukaemia [Fatal]
  - Clostridium difficile infection [Unknown]
  - Upper respiratory tract infection [Unknown]
  - Platelet count decreased [Unknown]
  - Gastrointestinal infection [Unknown]
  - White blood cell count decreased [Unknown]
  - Minimal residual disease [Unknown]
  - Neutrophil count decreased [Unknown]
  - Haematocrit decreased [Unknown]
  - Malignant neoplasm progression [Fatal]
  - Hypogammaglobulinaemia [Recovered/Resolved]
  - Rhinovirus infection [Unknown]
